FAERS Safety Report 20343112 (Version 5)
Quarter: 2022Q2

REPORT INFORMATION
  Report Type: Report from Study
  Country: US (occurrence: US)
  Receive Date: 20220117
  Receipt Date: 20220622
  Transmission Date: 20220721
  Serious: Yes (Death, Hospitalization)
  Sender: FDA-Public Use
  Company Number: US-NOVARTISPH-NVSC2022US008691

PATIENT
  Age: 69 Year
  Sex: Male
  Weight: 73.9 kg

DRUGS (40)
  1. NEORAL [Suspect]
     Active Substance: CYCLOSPORINE
     Indication: COVID-19
     Dosage: 180 MG, BID
     Route: 048
     Dates: start: 20211108, end: 20211113
  2. REMDESIVIR [Suspect]
     Active Substance: REMDESIVIR
     Indication: COVID-19
     Dosage: 200 MG, ONCE
     Route: 042
     Dates: start: 20211107, end: 20211111
  3. ALBUTEROL SULFATE\IPRATROPIUM BROMIDE [Concomitant]
     Active Substance: ALBUTEROL SULFATE\IPRATROPIUM BROMIDE
     Indication: Respiratory disorder
     Dosage: 1 PUFF, Q6H
     Route: 055
     Dates: start: 20211107, end: 20211116
  4. ALBUTEROL SULFATE\IPRATROPIUM BROMIDE [Concomitant]
     Active Substance: ALBUTEROL SULFATE\IPRATROPIUM BROMIDE
     Dosage: 3 ML, Q4H, NEB
     Route: 065
     Dates: start: 20211116, end: 20211118
  5. AMIODARONE [Concomitant]
     Active Substance: AMIODARONE
     Indication: Arrhythmia prophylaxis
     Dosage: 200 MG, BID
     Route: 048
     Dates: start: 20211110, end: 20211116
  6. AMIODARONE [Concomitant]
     Active Substance: AMIODARONE
     Dosage: 200 MG, BID
     Route: 048
     Dates: start: 20211116, end: 20211116
  7. AMIODARONE [Concomitant]
     Active Substance: AMIODARONE
     Dosage: UNK
     Route: 065
     Dates: start: 20211117, end: 20211121
  8. BARICITINIB [Concomitant]
     Active Substance: BARICITINIB
     Indication: COVID-19
     Dosage: 4 MG, QD
     Route: 048
     Dates: start: 20211107, end: 20211111
  9. BENZONATATE [Concomitant]
     Active Substance: BENZONATATE
     Indication: Cough
     Dosage: 100 MG, Q8H
     Route: 048
     Dates: start: 20211106, end: 20211110
  10. DEXAMETHASONE [Concomitant]
     Active Substance: DEXAMETHASONE
     Indication: COVID-19
     Dosage: 6 MG, ONCE
     Route: 042
     Dates: start: 20211106, end: 20211106
  11. DEXAMETHASONE [Concomitant]
     Active Substance: DEXAMETHASONE
     Dosage: 6 MG, QD
     Route: 048
     Dates: start: 20211107, end: 20211115
  12. DILTIAZEM [Concomitant]
     Active Substance: DILTIAZEM
     Indication: Atrial fibrillation
     Dosage: 10 MG, ONCE
     Route: 042
     Dates: start: 20211109, end: 20211109
  13. DILTIAZEM [Concomitant]
     Active Substance: DILTIAZEM
     Dosage: 10 MG/H, CONTINUOUS
     Route: 042
     Dates: start: 20211109, end: 20211110
  14. DILTIAZEM [Concomitant]
     Active Substance: DILTIAZEM
     Dosage: 120 MG, QD
     Route: 048
     Dates: start: 20211110, end: 20211116
  15. ENOXAPARIN [Concomitant]
     Active Substance: ENOXAPARIN
     Indication: Thrombosis prophylaxis
     Dosage: 40 MG, QPM
     Route: 058
     Dates: start: 20211108, end: 20211111
  16. ENOXAPARIN [Concomitant]
     Active Substance: ENOXAPARIN
     Dosage: 1 MG/KG
     Route: 058
     Dates: start: 20211115, end: 20211118
  17. CODEINE PHOSPHATE\GUAIFENESIN [Concomitant]
     Active Substance: CODEINE PHOSPHATE\GUAIFENESIN
     Indication: Cough
     Dosage: 5-10 ML, Q4H, PRN
     Route: 048
     Dates: start: 20211108, end: 20211111
  18. HEPARIN [Concomitant]
     Active Substance: HEPARIN SODIUM
     Indication: Thrombosis prophylaxis
     Dosage: 3500 UNITS, ONCE
     Route: 042
     Dates: start: 20211112, end: 20211112
  19. HEPARIN [Concomitant]
     Active Substance: HEPARIN SODIUM
     Dosage: 14.5 ML/H, TITRATED
     Route: 042
     Dates: start: 20211112, end: 20211112
  20. HEPARIN [Concomitant]
     Active Substance: HEPARIN SODIUM
     Dosage: 9 ML/H
     Route: 042
     Dates: start: 20211113, end: 20211114
  21. HYDROCORTISONE [Concomitant]
     Active Substance: HYDROCORTISONE
     Indication: Pain
     Dosage: 25 MG, BID, PRN
     Route: 054
     Dates: start: 20211110, end: 20211110
  22. IBUPROFEN [Concomitant]
     Active Substance: IBUPROFEN
     Indication: Pyrexia
     Dosage: 600 MG, ONCE
     Route: 048
     Dates: start: 20211106, end: 20211106
  23. LORAZEPAM [Concomitant]
     Active Substance: LORAZEPAM
     Indication: Anxiety
     Dosage: 0.5 MG, Q6H, PRN
     Route: 042
     Dates: start: 20211113, end: 20211116
  24. METOCLOPRAMIDE [Concomitant]
     Active Substance: METOCLOPRAMIDE
     Indication: Gastrointestinal haemorrhage
     Dosage: 10 MG, ONCE
     Route: 042
     Dates: start: 20211107, end: 20211107
  25. METOCLOPRAMIDE [Concomitant]
     Active Substance: METOCLOPRAMIDE
     Dosage: 10 MG, QD
     Route: 048
     Dates: start: 20211108, end: 20211108
  26. METOCLOPRAMIDE [Concomitant]
     Active Substance: METOCLOPRAMIDE
     Dosage: 10 MG, QD
     Route: 042
     Dates: start: 20211109, end: 20211111
  27. SODIUM CHLORIDE [Concomitant]
     Active Substance: SODIUM CHLORIDE
     Indication: Nasal dryness
     Dosage: 2 SPRAYS, Q1H PRN, EACH NARE
     Route: 045
     Dates: start: 20211127, end: 20211127
  28. ALBUMIN HUMAN [Concomitant]
     Active Substance: ALBUMIN HUMAN
     Indication: Shock
     Dosage: 25 MG, ONCE
     Route: 042
     Dates: start: 20211116, end: 20211116
  29. EPOPROSTENOL [Concomitant]
     Active Substance: EPOPROSTENOL
     Indication: COVID-19
     Dosage: 8 ML/H, CONTINUOUS, NEB.
     Route: 065
     Dates: start: 20211116, end: 20211127
  30. FAMOTIDINE [Concomitant]
     Active Substance: FAMOTIDINE
     Indication: Gastrooesophageal reflux disease
     Dosage: 20 MG, BID
     Route: 042
     Dates: start: 20211116, end: 20211127
  31. FENTANYL [Concomitant]
     Active Substance: FENTANYL
     Indication: Pain
     Dosage: 100 UG, ONCE
     Route: 042
     Dates: start: 20211116, end: 20211116
  32. FENTANYL [Concomitant]
     Active Substance: FENTANYL
     Dosage: 0-300 MCG/H
     Route: 042
     Dates: start: 20211116, end: 20211123
  33. ASPIRIN [Concomitant]
     Active Substance: ASPIRIN
     Indication: Prophylaxis
     Dosage: 81 MG, QD
     Route: 048
     Dates: start: 20211117, end: 20211127
  34. ZINC SULFATE [Concomitant]
     Active Substance: ZINC SULFATE
     Indication: Supplementation therapy
     Dosage: 220 MG, QD
     Route: 065
     Dates: start: 20211117, end: 20211120
  35. POLYETHYLENE GLYCOL [Concomitant]
     Active Substance: POLYETHYLENE GLYCOL
     Indication: Constipation
     Dosage: 17 G, ONCE
     Route: 065
     Dates: start: 20211117
  36. MELATONIN [Concomitant]
     Active Substance: MELATONIN
     Indication: Insomnia
     Dosage: 3 MG, QHS
     Route: 048
     Dates: start: 20211116, end: 20211116
  37. MELATONIN [Concomitant]
     Active Substance: MELATONIN
     Dosage: UNK
     Route: 065
     Dates: start: 20211117, end: 20211127
  38. MIDAZOLAM [Concomitant]
     Active Substance: MIDAZOLAM
     Indication: Anxiety
     Dosage: 1-3 MG, Q1H, PRN
     Route: 042
     Dates: start: 20211116, end: 20211125
  39. MIDAZOLAM [Concomitant]
     Active Substance: MIDAZOLAM
     Indication: Sedation
  40. ROCURONIUM [Concomitant]
     Active Substance: ROCURONIUM BROMIDE
     Indication: Sedation
     Dosage: 50 MG, ONCE
     Route: 042
     Dates: start: 20211116, end: 20211116

REACTIONS (2)
  - COVID-19 pneumonia [Fatal]
  - Pneumonia aspiration [Fatal]

NARRATIVE: CASE EVENT DATE: 20211117
